FAERS Safety Report 21011197 (Version 3)
Quarter: 2025Q1

REPORT INFORMATION
  Report Type: Spontaneous
  Country: US (occurrence: US)
  Receive Date: 20220627
  Receipt Date: 20250131
  Transmission Date: 20250409
  Serious: No
  Sender: BRISTOL-MYERS SQUIBB COMPANY
  Company Number: US-BRISTOL-MYERS SQUIBB COMPANY-2022-064021

PATIENT
  Age: 59 Year
  Sex: Female

DRUGS (1)
  1. ORENCIA [Suspect]
     Active Substance: ABATACEPT
     Indication: Rheumatoid arthritis
     Dosage: BATCH NUMBER: ACD2799, EXPIRATION DATE: 29-FEB-2024
     Route: 058
     Dates: start: 20220526

REACTIONS (2)
  - Joint swelling [Unknown]
  - Arthralgia [Unknown]
